FAERS Safety Report 18155224 (Version 2)
Quarter: 2020Q3

REPORT INFORMATION
  Report Type: Spontaneous
  Country: US (occurrence: US)
  Receive Date: 20200817
  Receipt Date: 20200817
  Transmission Date: 20201103
  Serious: No
  Sender: FDA-Public Use
  Company Number: US-ALLERGAN-2026747US

PATIENT
  Age: 84 Year
  Sex: Male

DRUGS (2)
  1. ANDRODERM [Suspect]
     Active Substance: TESTOSTERONE
     Indication: MUSCULAR WEAKNESS
     Dosage: UNK
     Route: 062
     Dates: start: 20200708, end: 20200708
  2. ANDRODERM [Suspect]
     Active Substance: TESTOSTERONE
     Indication: MUSCULAR WEAKNESS
     Dosage: UNK
     Route: 062
     Dates: start: 20191027, end: 20200519

REACTIONS (3)
  - Gait inability [Recovering/Resolving]
  - Off label use [Unknown]
  - Asthenia [Not Recovered/Not Resolved]

NARRATIVE: CASE EVENT DATE: 20200712
